FAERS Safety Report 10084828 (Version 2)
Quarter: 2014Q2

REPORT INFORMATION
  Report Type: Spontaneous
  Country: US (occurrence: US)
  Receive Date: 20140417
  Receipt Date: 20140417
  Transmission Date: 20141212
  Serious: Yes (Other)
  Sender: FDA-Public Use
  Company Number: US-TEVA-356365USA

PATIENT
  Age: 86 Year
  Sex: Female

DRUGS (4)
  1. WARFARIN [Suspect]
     Route: 065
  2. TERIPARATIDE [Suspect]
     Indication: OSTEOPOROSIS
     Dosage: 20 ?G/DAY
     Route: 058
  3. PREDNISONE [Suspect]
     Dosage: 5 MILLIGRAM DAILY;
     Route: 065
  4. CALCIUM AND VITAMIN D [Concomitant]
     Route: 065

REACTIONS (1)
  - Calciphylaxis [Recovering/Resolving]
